FAERS Safety Report 7884302-2 (Version None)
Quarter: 2011Q4

REPORT INFORMATION
  Report Type: 
  Country: None (occurrence: None)
  Receive Date: 20111102
  Receipt Date: 20111025
  Transmission Date: 20120403
  Serious: Yes (Hospitalization)
  Sender: FDA-Public Use
  Company Number: US-GILEAD-2011-0045912

PATIENT
  Age: 64 Year
  Sex: Female

DRUGS (6)
  1. LETAIRIS [Suspect]
     Indication: PRODUCT USED FOR UNKNOWN INDICATION
     Dosage: 10 MG, UNK
     Route: 048
     Dates: start: 20110225
  2. ADCIRCA [Concomitant]
  3. FLOLAN [Concomitant]
  4. TYVASO [Concomitant]
  5. EPOPROSTENOL SODIUM [Concomitant]
  6. REVATIO [Concomitant]

REACTIONS (3)
  - SYNCOPE [None]
  - SWELLING [None]
  - INSOMNIA [None]
